FAERS Safety Report 17688828 (Version 1)
Quarter: 2020Q2

REPORT INFORMATION
  Report Type: Other
  Country: US (occurrence: US)
  Receive Date: 20200421
  Receipt Date: 20200421
  Transmission Date: 20200714
  Serious: Yes (Life-Threatening, Hospitalization, Other)
  Sender: FDA-Public Use
  Company Number: US-DEXPHARM-20200334

PATIENT
  Age: 57 Year
  Sex: Female

DRUGS (5)
  1. ESCITALOPRAM [Suspect]
     Active Substance: ESCITALOPRAM OXALATE
  2. OMEPRAZOLE. [Suspect]
     Active Substance: OMEPRAZOLE
     Dosage: CHRONIC OMEPRAZOLE USE
  3. HYDROXYZINE [Suspect]
     Active Substance: HYDROXYZINE HYDROCHLORIDE
  4. ONDANSETRON [Suspect]
     Active Substance: ONDANSETRON
  5. LOPERAMIDE [Suspect]
     Active Substance: LOPERAMIDE

REACTIONS (1)
  - Long QT syndrome [Recovered/Resolved]
